FAERS Safety Report 12708033 (Version 2)
Quarter: 2016Q4

REPORT INFORMATION
  Report Type: Spontaneous
  Country: US (occurrence: US)
  Receive Date: 20160901
  Receipt Date: 20161013
  Transmission Date: 20170207
  Serious: No
  Sender: FDA-Public Use
  Company Number: US-PFIZER INC-3240656

PATIENT
  Sex: Male

DRUGS (2)
  1. LIDOCAINE HCL [Suspect]
     Active Substance: LIDOCAINE HYDROCHLORIDE
     Indication: ULTRASOUND PROSTATE
     Dosage: TOTAL OF 4ML WITH CEFTRIAXONE
     Route: 030
  2. CEFTRIAXONE SODIUM. [Suspect]
     Active Substance: CEFTRIAXONE SODIUM
     Indication: PROPHYLAXIS
     Dosage: 2 GRAMS DILUTED WITH 1% LIDOCAINE, TOTAL 4 ML
     Route: 030

REACTIONS (2)
  - Loss of consciousness [Unknown]
  - Incorrect dose administered [Unknown]
